FAERS Safety Report 5273996-6 (Version None)
Quarter: 2007Q1

REPORT INFORMATION
  Report Type: 
  Country: None (occurrence: None)
  Receive Date: 20070323
  Receipt Date: 20070314
  Transmission Date: 20070707
  Serious: Yes (Hospitalization)
  Sender: FDA-Public Use
  Company Number: PH-GLAXOSMITHKLINE-B0460746A

PATIENT
  Age: 50 Year
  Sex: Female
  Weight: 65.5 kg

DRUGS (7)
  1. GW679769 [Suspect]
     Dosage: 150MG CYCLIC
     Route: 048
     Dates: start: 20070105, end: 20070221
  2. ZOFRAN [Suspect]
     Dosage: 8MG CYCLIC
     Route: 048
     Dates: start: 20070105, end: 20070221
  3. DEXAMETHASONE [Suspect]
     Dosage: 8MG CYCLIC
     Route: 042
     Dates: start: 20070105, end: 20070221
  4. FERROUS SULFATE TAB [Concomitant]
     Dosage: 325MG TWICE PER DAY
     Route: 048
     Dates: start: 20070105
  5. FLUOROURACIL [Concomitant]
     Dates: start: 20070105
  6. DOXORUBICIN HCL [Concomitant]
     Dates: start: 20070105
  7. CYCLOPHOSPHAMIDE [Concomitant]
     Dates: start: 20070105

REACTIONS (1)
  - FEBRILE NEUTROPENIA [None]
